FAERS Safety Report 7757045-3 (Version None)
Quarter: 2011Q3

REPORT INFORMATION
  Report Type: 
  Country: None (occurrence: None)
  Receive Date: 20110916
  Receipt Date: 20110908
  Transmission Date: 20111222
  Serious: Yes (Death, Life-Threatening, Other)
  Sender: FDA-Public Use
  Company Number: JP-CEPHALON-2011004753

PATIENT
  Sex: Female
  Weight: 40 kg

DRUGS (5)
  1. METHYLPREDNISOLONE SODIUM SUCCINATE [Concomitant]
     Dates: start: 20110726, end: 20110726
  2. TREANDA [Suspect]
     Route: 042
     Dates: start: 20110728, end: 20110728
  3. CLADRIBINE [Concomitant]
  4. TREANDA [Suspect]
     Indication: HAIRY CELL LEUKAEMIA
     Route: 042
     Dates: start: 20110727, end: 20110727
  5. HYDROCORTISONE SODIUM SUCCINATE [Concomitant]
     Dates: start: 20110811, end: 20110811

REACTIONS (7)
  - CYTOMEGALOVIRUS INFECTION [None]
  - GASTROINTESTINAL HAEMORRHAGE [None]
  - NEUTROPENIA [None]
  - PANCYTOPENIA [None]
  - PNEUMONIA [None]
  - CONDITION AGGRAVATED [None]
  - BONE MARROW FAILURE [None]
